FAERS Safety Report 10363235 (Version 3)
Quarter: 2014Q3

REPORT INFORMATION
  Report Type: Spontaneous
  Country: US (occurrence: US)
  Receive Date: 20140805
  Receipt Date: 20140808
  Transmission Date: 20150326
  Serious: No
  Sender: FDA-Public Use
  Company Number: US-TAKEDA-2014TUS005341

PATIENT
  Age: 3 Decade
  Sex: Male

DRUGS (3)
  1. ENTYVIO [Suspect]
     Active Substance: VEDOLIZUMAB
     Dosage: 300 MG, ONE DOSE
     Route: 042
     Dates: start: 20140624, end: 20140624
  2. ENTYVIO [Suspect]
     Active Substance: VEDOLIZUMAB
     Dosage: 300 MG ONE DOSE
     Route: 042
     Dates: start: 20140624, end: 20140624
  3. ENTYVIO [Suspect]
     Active Substance: VEDOLIZUMAB
     Indication: COLITIS ULCERATIVE
     Dosage: 300 MG, ONE DOSE
     Route: 042
     Dates: start: 20140610, end: 20140610

REACTIONS (2)
  - Transaminases increased [Not Recovered/Not Resolved]
  - Abdominal pain [Not Recovered/Not Resolved]
